FAERS Safety Report 4449602-7 (Version None)
Quarter: 2004Q3

REPORT INFORMATION
  Report Type: 
  Country: None (occurrence: None)
  Receive Date: 20040913
  Receipt Date: 20040913
  Transmission Date: 20050211
  Serious: Yes (Other)
  Sender: FDA-Public Use
  Company Number: None

PATIENT
  Age: 63 Year
  Sex: Female
  Weight: 49.2153 kg

DRUGS (5)
  1. TAXOTERE [Suspect]
     Indication: LUNG NEOPLASM MALIGNANT
     Dosage: 29.6 MG IV QWEEK
     Route: 042
     Dates: start: 20040819, end: 20040909
  2. CARBOPLATIN [Suspect]
     Indication: LUNG NEOPLASM MALIGNANT
     Dosage: 179.2 MG IV QWEEK
     Route: 042
     Dates: start: 20040819, end: 20040909
  3. PREDNISONE [Concomitant]
  4. BENADRYL [Concomitant]
  5. IMODIUM [Concomitant]

REACTIONS (2)
  - RASH GENERALISED [None]
  - RASH PRURITIC [None]
